FAERS Safety Report 17047718 (Version 1)
Quarter: 2019Q4

REPORT INFORMATION
  Report Type: Spontaneous
  Country: IT (occurrence: IT)
  Receive Date: 20191119
  Receipt Date: 20191119
  Transmission Date: 20200122
  Serious: Yes (Other)
  Sender: FDA-Public Use
  Company Number: IT-TECHNOMED INC.-2076992

PATIENT
  Age: 54 Year
  Sex: Female

DRUGS (6)
  1. SELOKEN [METOPROLOL TARTRATE] [Suspect]
     Active Substance: METOPROLOL TARTRATE
     Route: 042
     Dates: start: 20190919, end: 20191001
  2. TAZOCIN [Concomitant]
     Active Substance: PIPERACILLIN SODIUM\TAZOBACTAM SODIUM
  3. MANNITOLO FRESENIUS KABI ITALIA 18% SOLUZIONE PER INFUSIONE [Concomitant]
  4. CATAPRESAN TTS [Suspect]
     Active Substance: CLONIDINE
     Indication: HYPERTENSION
     Route: 062
     Dates: start: 20190919
  5. NORVASC [Suspect]
     Active Substance: AMLODIPINE BESYLATE
     Route: 048
     Dates: start: 20190919, end: 20191001
  6. TRIATEC 5MG [Suspect]
     Active Substance: RAMIPRIL
     Route: 048
     Dates: start: 20190919

REACTIONS (2)
  - Therapy non-responder [Recovering/Resolving]
  - Hypertensive crisis [Recovering/Resolving]

NARRATIVE: CASE EVENT DATE: 20190921
